FAERS Safety Report 5855434-5 (Version None)
Quarter: 2008Q3

REPORT INFORMATION
  Report Type: 
  Country: None (occurrence: None)
  Receive Date: 20080821
  Receipt Date: 20080811
  Transmission Date: 20090109
  Serious: Yes (Hospitalization)
  Sender: FDA-Public Use
  Company Number: 2008AL005905

PATIENT
  Age: 72 Year
  Sex: Male

DRUGS (1)
  1. DIGOXIN [Suspect]
     Dosage: 0.125MG, QOD, PO
     Route: 048

REACTIONS (2)
  - CARDIAC FIBRILLATION [None]
  - DYSPNOEA [None]
